FAERS Safety Report 5583939-3 (Version None)
Quarter: 2008Q1

REPORT INFORMATION
  Report Type: 
  Country: None (occurrence: None)
  Receive Date: 20080108
  Receipt Date: 20071226
  Transmission Date: 20080703
  Serious: Yes (Other)
  Sender: FDA-Public Use
  Company Number: US-ELI_LILLY_AND_COMPANY-US200712001830

PATIENT
  Age: 60 Year
  Sex: Female

DRUGS (1)
  1. EVISTA [Suspect]
     Indication: OSTEOPENIA
     Dates: start: 19970101

REACTIONS (3)
  - DRUG INEFFECTIVE [None]
  - GAMMOPATHY [None]
  - PARAPROTEINAEMIA [None]
